FAERS Safety Report 4889013-3 (Version None)
Quarter: 2005Q4

REPORT INFORMATION
  Report Type: 
  Country: None (occurrence: None)
  Receive Date: 20051215
  Receipt Date: 20050818
  Transmission Date: 20060501
  Serious: Yes (Hospitalization)
  Sender: FDA-Public Use
  Company Number: 2005117891

PATIENT
  Sex: Female
  Weight: 70.3075 kg

DRUGS (8)
  1. BEXTRA [Suspect]
     Indication: NAIL OPERATION
     Dosage: 20 MG (20 MG, 1 IN 1 D), ORAL
     Route: 048
     Dates: start: 20040401
  2. NEURONTIN [Concomitant]
  3. INSULIN [Concomitant]
  4. ASPIRIN [Concomitant]
  5. ZOLOFT (SERTRALIINE) [Concomitant]
  6. ANTIBIOTICS (ANTIBIOTICS) [Concomitant]
  7. PERCOCET [Concomitant]
  8. DARVOCET [Concomitant]

REACTIONS (7)
  - AORTIC OCCLUSION [None]
  - ARTHROPATHY [None]
  - CHEST PAIN [None]
  - FEELING ABNORMAL [None]
  - HEADACHE [None]
  - HYPOAESTHESIA [None]
  - VISUAL DISTURBANCE [None]
